FAERS Safety Report 9255222 (Version 1)
Quarter: 2013Q2

REPORT INFORMATION
  Report Type: Spontaneous
  Country: US (occurrence: None)
  Receive Date: 20130423
  Receipt Date: 20130423
  Transmission Date: 20140414
  Serious: No
  Sender: FDA-Public Use
  Company Number: None

PATIENT
  Age: 77 Year
  Sex: Female

DRUGS (1)
  1. EXJADE 500 MG NOVARTIS [Suspect]
     Route: 048
     Dates: start: 201302, end: 201302

REACTIONS (3)
  - Nausea [None]
  - Muscle spasms [None]
  - Blood urine present [None]
